FAERS Safety Report 18797246 (Version 1)
Quarter: 2021Q1

REPORT INFORMATION
  Report Type: Spontaneous
  Country: US (occurrence: US)
  Receive Date: 20210128
  Receipt Date: 20210128
  Transmission Date: 20210419
  Serious: Yes (Other)
  Sender: FDA-Public Use
  Company Number: US-ROCHE-2707592

PATIENT
  Age: 45 Year
  Sex: Female

DRUGS (1)
  1. XELODA [Suspect]
     Active Substance: CAPECITABINE
     Indication: BREAST CANCER
     Route: 048
     Dates: start: 202010, end: 202012

REACTIONS (6)
  - Palmar-plantar erythrodysaesthesia syndrome [Unknown]
  - Gastric infection [Unknown]
  - Localised infection [Unknown]
  - Feeding disorder [Unknown]
  - Ageusia [Unknown]
  - Hernia [Unknown]

NARRATIVE: CASE EVENT DATE: 20201016
